FAERS Safety Report 5801347-4 (Version None)
Quarter: 2008Q3

REPORT INFORMATION
  Report Type: 
  Country: None (occurrence: None)
  Receive Date: 20080703
  Receipt Date: 20080703
  Transmission Date: 20090109
  Serious: Yes (Hospitalization)
  Sender: FDA-Public Use
  Company Number: None

PATIENT
  Sex: Female
  Weight: 97.5234 kg

DRUGS (3)
  1. PROPRANOLOL [Suspect]
     Indication: BLOOD PRESSURE
     Dosage: 120 MG 1 TIME DAILY BY MOUTH WEEK OF NOV (1ST) 2007
     Route: 048
     Dates: start: 20071101
  2. PROPRANOLOL [Suspect]
     Indication: PALPITATIONS
     Dosage: 120 MG 1 TIME DAILY BY MOUTH WEEK OF NOV (1ST) 2007
     Route: 048
     Dates: start: 20071101
  3. INDERAL LA [Suspect]

REACTIONS (5)
  - ASTHENIA [None]
  - CHEST PAIN [None]
  - HYPERTENSION [None]
  - NAUSEA [None]
  - PHARMACEUTICAL PRODUCT COMPLAINT [None]
